FAERS Safety Report 9500459 (Version 1)
Quarter: 2013Q1

REPORT INFORMATION
  Report Type: Spontaneous
  Country: US (occurrence: None)
  Receive Date: 20130118
  Receipt Date: 20130118
  Transmission Date: 20140127
  Serious: No
  Sender: FDA-Public Use
  Company Number: A-NJ2012-68445

PATIENT
  Age: 85 Year
  Sex: Female

DRUGS (4)
  1. TRACLEER [Suspect]
     Indication: PULMONARY ARTERIAL HYPERTENSION
     Route: 048
     Dates: start: 201206, end: 20120702
  2. SILDENAFIL (SILDENAFIL CITRATE) [Concomitant]
  3. COUMADIN (WARFARIN SODIUM) [Concomitant]
  4. ASPIRIN (ACETYLSALICYLIC ACID) [Concomitant]

REACTIONS (2)
  - Anaemia [None]
  - Haemoglobin decreased [None]
